FAERS Safety Report 16709710 (Version 2)
Quarter: 2019Q3

REPORT INFORMATION
  Report Type: Spontaneous
  Country: JP (occurrence: JP)
  Receive Date: 20190816
  Receipt Date: 20190819
  Transmission Date: 20191004
  Serious: Yes (Other)
  Sender: FDA-Public Use
  Company Number: PHJP2019JP010443

PATIENT
  Sex: Female

DRUGS (2)
  1. RITALIN [Suspect]
     Active Substance: METHYLPHENIDATE HYDROCHLORIDE
     Indication: DEPRESSION
     Dosage: UNK
     Route: 048
  2. RITALIN [Suspect]
     Active Substance: METHYLPHENIDATE HYDROCHLORIDE
     Dosage: REDUCED DOSE, UNK
     Route: 048

REACTIONS (8)
  - Schizophrenia [Unknown]
  - Hallucination, auditory [Unknown]
  - Drug withdrawal syndrome [Unknown]
  - Therapeutic product effect incomplete [Unknown]
  - Aversion [Unknown]
  - Mental disorder [Unknown]
  - Hypomania [Unknown]
  - Product use in unapproved indication [Unknown]
